FAERS Safety Report 20381969 (Version 1)
Quarter: 2022Q1

REPORT INFORMATION
  Report Type: Report from Study
  Country: US (occurrence: US)
  Receive Date: 20220127
  Receipt Date: 20220127
  Transmission Date: 20220424
  Serious: Yes (Other)
  Sender: FDA-Public Use
  Company Number: US-MYLANLABS-2022M1006683

PATIENT
  Age: 3 Decade
  Sex: Female

DRUGS (18)
  1. SUMATRIPTAN [Suspect]
     Active Substance: SUMATRIPTAN
     Indication: Migraine
     Dosage: UNK
     Route: 065
  2. SUMATRIPTAN [Suspect]
     Active Substance: SUMATRIPTAN
     Indication: Migraine with aura
  3. ATENOLOL [Suspect]
     Active Substance: ATENOLOL
     Indication: Migraine
     Dosage: UNK
     Route: 065
  4. ATENOLOL [Suspect]
     Active Substance: ATENOLOL
     Indication: Migraine with aura
  5. ERENUMAB [Suspect]
     Active Substance: ERENUMAB
     Indication: Migraine with aura
     Dosage: 70 MILLIGRAM, MONTHLY
     Route: 065
  6. ERENUMAB [Suspect]
     Active Substance: ERENUMAB
     Indication: Migraine
  7. VERAPAMIL [Concomitant]
     Active Substance: VERAPAMIL HYDROCHLORIDE
     Indication: Migraine with aura
     Dosage: UNK
     Route: 065
  8. VERAPAMIL [Concomitant]
     Active Substance: VERAPAMIL HYDROCHLORIDE
     Indication: Migraine
  9. ACETAMINOPHEN\CAFFEINE CITRATE [Concomitant]
     Active Substance: ACETAMINOPHEN\CAFFEINE CITRATE
     Indication: Migraine with aura
     Dosage: UNK
     Route: 065
  10. ACETAMINOPHEN\CAFFEINE CITRATE [Concomitant]
     Active Substance: ACETAMINOPHEN\CAFFEINE CITRATE
     Indication: Migraine
  11. ONABOTULINUMTOXINA [Concomitant]
     Active Substance: ONABOTULINUMTOXINA
     Indication: Migraine with aura
     Dosage: UNK
     Route: 065
  12. ONABOTULINUMTOXINA [Concomitant]
     Active Substance: ONABOTULINUMTOXINA
     Indication: Migraine
  13. NAPROXEN [Concomitant]
     Active Substance: NAPROXEN
     Indication: Migraine with aura
     Dosage: UNK
     Route: 065
  14. NAPROXEN [Concomitant]
     Active Substance: NAPROXEN
     Indication: Migraine
  15. PROMETHAZINE [Concomitant]
     Active Substance: PROMETHAZINE HYDROCHLORIDE
     Indication: Migraine with aura
     Dosage: UNK
     Route: 065
  16. PROMETHAZINE [Concomitant]
     Active Substance: PROMETHAZINE HYDROCHLORIDE
     Indication: Migraine
  17. FLURBIPROFEN [Concomitant]
     Active Substance: FLURBIPROFEN
     Indication: Migraine with aura
     Dosage: UNK
     Route: 065
  18. FLURBIPROFEN [Concomitant]
     Active Substance: FLURBIPROFEN
     Indication: Migraine

REACTIONS (2)
  - Raynaud^s phenomenon [Recovered/Resolved]
  - Off label use [Unknown]
